FAERS Safety Report 7138301-9 (Version None)
Quarter: 2010Q4

REPORT INFORMATION
  Report Type: 
  Country: None (occurrence: None)
  Receive Date: 20101118
  Receipt Date: 20101102
  Transmission Date: 20110411
  Serious: Yes (Hospitalization)
  Sender: FDA-Public Use
  Company Number: UTC-001906

PATIENT
  Age: 29 Year
  Sex: Male
  Weight: 84.8 kg

DRUGS (5)
  1. TYVASO [Suspect]
     Indication: PULMONARY ARTERIAL HYPERTENSION
     Dosage: (36 MCQ,D), INHALATION
     Route: 055
     Dates: start: 20100310, end: 20101021
  2. REVATIO [Concomitant]
  3. LETAIRIS (AMBRISENTAN) [Concomitant]
  4. OXYGEN (OXYGEN) [Concomitant]
  5. NIFEDICAL XL (NIFEIDIPINE) [Concomitant]

REACTIONS (2)
  - INFECTION [None]
  - RESPIRATORY FAILURE [None]
